FAERS Safety Report 7297799-6 (Version None)
Quarter: 2011Q1

REPORT INFORMATION
  Report Type: 
  Country: None (occurrence: None)
  Receive Date: 20110207
  Receipt Date: 20110128
  Transmission Date: 20110831
  Serious: Yes (Death)
  Sender: FDA-Public Use
  Company Number: JPI-P-013510

PATIENT
  Age: 76 Year
  Sex: Female
  Weight: 61.2356 kg

DRUGS (3)
  1. MODAFINIL [Concomitant]
  2. XYREM [Suspect]
     Indication: NARCOLEPSY
     Dosage: (4.5 GM (2.25 GM, 2 IN 1 D), ORAL) (6 GM (3 GM, 2 IN 1 D), ORALO
     Route: 048
     Dates: start: 20030429
  3. XYREM [Suspect]
     Indication: NARCOLEPSY
     Dosage: (4.5 GM (2.25 GM, 2 IN 1 D), ORAL) (6 GM (3 GM, 2 IN 1 D), ORALO
     Route: 048
     Dates: start: 20030714

REACTIONS (1)
  - DEATH [None]
